FAERS Safety Report 5474640-5 (Version None)
Quarter: 2007Q3

REPORT INFORMATION
  Report Type: 
  Country: None (occurrence: None)
  Receive Date: 20070831
  Receipt Date: 20070613
  Transmission Date: 20080115
  Serious: No
  Sender: FDA-Public Use
  Company Number: 240868

PATIENT
  Age: 86 Year
  Sex: Female

DRUGS (13)
  1. LUCENTIS [Suspect]
     Indication: MACULAR DEGENERATION
     Dosage: INTRAVITREAL
     Dates: start: 20060701
  2. NORVASC [Concomitant]
  3. DIOVAN [Concomitant]
  4. PROPRANOLOL (PROPRANOLOL HYDROCHLORIDE) [Concomitant]
  5. SYNTHROID [Concomitant]
  6. LIPITOR (ATORVASTTIN CALCIUM) [Concomitant]
  7. NORTRIPTYLINE HCL [Concomitant]
  8. FOSAMAX [Concomitant]
  9. ASPIRIN [Concomitant]
  10. CENTRIUM (MONNERALS NOST, MULTIVITAMINS NOS) [Concomitant]
  11. CALTRATE 600 +D (CALCIUM NOS, CHOLECALCIFEROL) [Concomitant]
  12. NASONEX [Concomitant]
  13. EYE CAPS (UNK INGREDIENTS) (GENERIC COMPONENT(S) [Concomitant]

REACTIONS (1)
  - INJECTION SITE IRRITATION [None]
